FAERS Safety Report 11679776 (Version 2)
Quarter: 2015Q4

REPORT INFORMATION
  Report Type: Spontaneous
  Country: US (occurrence: US)
  Receive Date: 20151027
  Receipt Date: 20151104
  Transmission Date: 20160304
  Serious: No
  Sender: FDA-Public Use
  Company Number: US-ELI_LILLY_AND_COMPANY-US201009004738

PATIENT
  Age: 74 Year
  Sex: Female
  Weight: 46.71 kg

DRUGS (11)
  1. FORTEO [Suspect]
     Active Substance: TERIPARATIDE
     Indication: OSTEOPOROSIS
     Dosage: 20 UG, DAILY (1/D)
     Route: 058
     Dates: start: 201008
  2. VITAMIN B12 [Concomitant]
     Active Substance: CYANOCOBALAMIN
  3. FORTEO [Suspect]
     Active Substance: TERIPARATIDE
     Dosage: 20 UG, DAILY (1/D)
     Route: 058
     Dates: end: 20101018
  4. CALCIUM [Concomitant]
     Active Substance: CALCIUM
  5. ASA [Concomitant]
     Active Substance: ASPIRIN
  6. VITAMIN D [Concomitant]
     Active Substance: CHOLECALCIFEROL
  7. METHIMAZOLE. [Concomitant]
     Active Substance: METHIMAZOLE
  8. FORTEO [Suspect]
     Active Substance: TERIPARATIDE
     Dosage: 20 UG, QOD
     Route: 058
     Dates: start: 20101105
  9. LORASTINE [Concomitant]
  10. XALATAN [Concomitant]
     Active Substance: LATANOPROST
  11. CRANBERRY. [Concomitant]
     Active Substance: CRANBERRY

REACTIONS (7)
  - Constipation [Unknown]
  - Malaise [Unknown]
  - Inappropriate schedule of drug administration [Unknown]
  - Muscle spasms [Recovering/Resolving]
  - Bronchitis [Unknown]
  - Arthralgia [Recovering/Resolving]
  - Nasopharyngitis [Unknown]
